FAERS Safety Report 18039006 (Version 2)
Quarter: 2020Q3

REPORT INFORMATION
  Report Type: Report from Study
  Country: None (occurrence: GB)
  Receive Date: 20200718
  Receipt Date: 20200831
  Transmission Date: 20201103
  Serious: Yes (Hospitalization)
  Sender: FDA-Public Use
  Company Number: GB-ABBVIE-20K-167-3484108-00

PATIENT
  Age: 30 Year
  Sex: Female

DRUGS (18)
  1. HUMIRA [Suspect]
     Active Substance: ADALIMUMAB
     Indication: COLITIS ULCERATIVE
     Route: 058
     Dates: start: 20151025, end: 20160313
  2. PREDNISOLONE. [Concomitant]
     Active Substance: PREDNISOLONE
     Route: 048
     Dates: start: 20200213
  3. COCODAMOL [Concomitant]
     Active Substance: ACETAMINOPHEN\CODEINE PHOSPHATE
     Indication: SICKLE CELL DISEASE
     Dosage: 30/500 MILLIGRAM
     Route: 048
     Dates: start: 2017
  4. REMSIMA [Concomitant]
     Active Substance: INFLIXIMAB
     Indication: COLITIS ULCERATIVE
     Route: 041
     Dates: start: 20200204
  5. ASACOL [Concomitant]
     Active Substance: MESALAMINE
     Indication: COLITIS ULCERATIVE
     Route: 048
     Dates: start: 201407
  6. CODEINE [Concomitant]
     Active Substance: CODEINE
     Indication: SICKLE CELL DISEASE
     Route: 048
     Dates: start: 201312
  7. AZATHIOPRINE. [Suspect]
     Active Substance: AZATHIOPRINE
     Indication: COLITIS ULCERATIVE
     Route: 048
     Dates: start: 20160511, end: 20181204
  8. PREDNISOLONE. [Concomitant]
     Active Substance: PREDNISOLONE
     Route: 048
     Dates: start: 20191204, end: 20200212
  9. ALLOPURINOL. [Concomitant]
     Active Substance: ALLOPURINOL
     Indication: COLITIS ULCERATIVE
     Route: 048
     Dates: start: 201605
  10. PREDNISOLONE. [Concomitant]
     Active Substance: PREDNISOLONE
     Indication: COLITIS ULCERATIVE
     Route: 048
     Dates: start: 201604
  11. PREDNISOLONE. [Concomitant]
     Active Substance: PREDNISOLONE
     Dosage: REDUSING COURSE
     Route: 048
     Dates: start: 20180808, end: 20181003
  12. PENICILLIN V [Concomitant]
     Active Substance: PENICILLIN V
     Indication: SICKLE CELL DISEASE
     Route: 048
     Dates: start: 201312
  13. OXYCODONE [Concomitant]
     Active Substance: OXYCODONE
     Indication: SICKLE CELL DISEASE
     Route: 048
     Dates: start: 201603
  14. VEDOLIZUMAB [Concomitant]
     Active Substance: VEDOLIZUMAB
     Indication: COLITIS ULCERATIVE
     Route: 041
     Dates: start: 20190211, end: 20191206
  15. FOLIC ACID. [Concomitant]
     Active Substance: FOLIC ACID
     Indication: SICKLE CELL DISEASE
     Route: 048
     Dates: start: 201407
  16. PARACETAMOL [Concomitant]
     Active Substance: ACETAMINOPHEN
     Indication: SICKLE CELL DISEASE
     Route: 048
     Dates: start: 2016
  17. TRAMADOL. [Concomitant]
     Active Substance: TRAMADOL
     Indication: SICKLE CELL DISEASE
     Route: 048
     Dates: start: 2016
  18. LIDOCAINE. [Concomitant]
     Active Substance: LIDOCAINE
     Indication: SICKLE CELL DISEASE
     Dosage: PATCHES
     Route: 062
     Dates: start: 2016

REACTIONS (1)
  - Sickle cell anaemia with crisis [Not Recovered/Not Resolved]

NARRATIVE: CASE EVENT DATE: 20191114
